FAERS Safety Report 14130733 (Version 1)
Quarter: 2017Q4

REPORT INFORMATION
  Report Type: Other
  Country: FR (occurrence: FR)
  Receive Date: 20171026
  Receipt Date: 20171026
  Transmission Date: 20180321
  Serious: Yes (Other)
  Sender: FDA-Public Use
  Company Number: FR-ASTELLAS-2017US042788

PATIENT
  Age: 93 Year
  Sex: Female

DRUGS (12)
  1. FUROSEMIDE. [Interacting]
     Active Substance: FUROSEMIDE
     Indication: OEDEMA
     Route: 048
  2. VESICARE [Suspect]
     Active Substance: SOLIFENACIN SUCCINATE
     Indication: URINARY INCONTINENCE
     Dosage: UNK UNK, UNKNOWN FREQ.
     Route: 048
     Dates: start: 20160908
  3. OMEPRAZOLE. [Interacting]
     Active Substance: OMEPRAZOLE
     Indication: GASTROOESOPHAGEAL REFLUX DISEASE
     Dosage: UNK, UNKNOWN FREQ.
     Route: 048
  4. MIANSERINE [Interacting]
     Active Substance: MIANSERIN HYDROCHLORIDE
     Indication: AFFECTIVE DISORDER
     Route: 048
  5. FUROSEMIDE. [Interacting]
     Active Substance: FUROSEMIDE
     Route: 065
  6. APROVEL [Interacting]
     Active Substance: IRBESARTAN
     Indication: HYPERTENSION
     Route: 048
  7. RISPERDAL [Interacting]
     Active Substance: RISPERIDONE
     Indication: ANXIETY
     Dosage: UNK, UNKNOWN FREQ.
     Route: 048
  8. APROVEL [Interacting]
     Active Substance: IRBESARTAN
     Route: 065
  9. BISOPROLOL                         /00802602/ [Interacting]
     Active Substance: BISOPROLOL
     Indication: HYPERTENSION
     Route: 048
  10. SERESTA [Interacting]
     Active Substance: OXAZEPAM
     Indication: ANXIETY
     Route: 048
  11. AERIUS [Interacting]
     Active Substance: DESLORATADINE
     Indication: HYPERSENSITIVITY
     Dosage: UNK, UNKNOWN FREQ.
     Route: 048
     Dates: start: 20160908
  12. SINGULAIR [Interacting]
     Active Substance: MONTELUKAST SODIUM
     Indication: ASTHMA
     Dosage: UNK, UNKNOWN FREQ.
     Route: 048

REACTIONS (3)
  - Hypotension [Recovered/Resolved]
  - Fall [Recovered/Resolved]
  - Drug interaction [Unknown]

NARRATIVE: CASE EVENT DATE: 20171010
